FAERS Safety Report 19992247 (Version 1)
Quarter: 2021Q4

REPORT INFORMATION
  Report Type: Spontaneous
  Country: SA (occurrence: SA)
  Receive Date: 20211025
  Receipt Date: 20211025
  Transmission Date: 20220303
  Serious: Yes (Death, Hospitalization, Other)
  Sender: FDA-Public Use
  Company Number: SA-AXELLIA-003897

PATIENT
  Age: 25 Week
  Sex: Male

DRUGS (2)
  1. DAPTOMYCIN [Suspect]
     Active Substance: DAPTOMYCIN
     Indication: Staphylococcal infection
     Dosage: 6 MG PER KG PER DOSE EVERY 12 H
     Route: 042
  2. LEVOFLOXACIN [Concomitant]
     Active Substance: LEVOFLOXACIN
     Indication: Stenotrophomonas infection

REACTIONS (2)
  - Disseminated intravascular coagulation [Fatal]
  - Liver injury [Fatal]
